FAERS Safety Report 19434913 (Version 2)
Quarter: 2021Q4

REPORT INFORMATION
  Report Type: Other
  Country: US (occurrence: None)
  Receive Date: 20210617
  Receipt Date: 20211115
  Transmission Date: 20220303
  Serious: Yes (Other)
  Sender: FDA-Public Use
  Company Number: US-ROCHE-2847905

PATIENT
  Sex: Female
  Weight: 79.450 kg

DRUGS (2)
  1. OCREVUS [Suspect]
     Active Substance: OCRELIZUMAB
     Indication: Relapsing multiple sclerosis
     Dosage: ONGOING YES ?DATE OF TREATMENT: 30/AUG/2019, 02/MAR/2020, 20/OCT/2020, 20/APR/2021
     Route: 041
     Dates: start: 20190228
  2. VITAMIN D3 [Concomitant]
     Active Substance: CHOLECALCIFEROL
     Route: 048

REACTIONS (6)
  - Sepsis [Unknown]
  - Localised infection [Recovered/Resolved]
  - Urinary tract infection [Not Recovered/Not Resolved]
  - Fall [Unknown]
  - Splinter [Unknown]
  - Asthma [Unknown]
